FAERS Safety Report 5106835-4 (Version None)
Quarter: 2006Q3

REPORT INFORMATION
  Report Type: 
  Country: None (occurrence: None)
  Receive Date: 20060912
  Receipt Date: 20060821
  Transmission Date: 20061208
  Serious: Yes (Hospitalization)
  Sender: FDA-Public Use
  Company Number: URSO 2005-014

PATIENT
  Age: 35 Year
  Sex: Female

DRUGS (10)
  1. URSODIOL [Suspect]
     Indication: BILIARY CIRRHOSIS PRIMARY
     Dosage: SEE IMAGE
     Route: 048
     Dates: start: 20020208, end: 20020430
  2. URSODIOL [Suspect]
     Indication: BILIARY CIRRHOSIS PRIMARY
     Dosage: SEE IMAGE
     Route: 048
     Dates: start: 20020501
  3. CHOLEBINE TABS (COLESTILAN) [Concomitant]
  4. MAGNESIUM OXIDE [Concomitant]
  5. MUCOSTA (REBAMIPIDE) [Concomitant]
  6. ALOSENN (SENNA) [Concomitant]
  7. BEZATOL SR (BEZAFIBRATE) [Concomitant]
  8. STRONGER NEO-MINOPHAGEN C (AMMONIUM GLYCYRRHIZINATE) [Concomitant]
  9. LIPITOR [Concomitant]
  10. PREDNISOLONE [Concomitant]

REACTIONS (3)
  - AUTOIMMUNE HEPATITIS [None]
  - CONDITION AGGRAVATED [None]
  - DRUG INEFFECTIVE [None]
